FAERS Safety Report 10778490 (Version 1)
Quarter: 2015Q1

REPORT INFORMATION
  Report Type: Spontaneous
  Country: US (occurrence: US)
  Receive Date: 20150210
  Receipt Date: 20150210
  Transmission Date: 20150721
  Serious: Yes (Death, Life-Threatening, Hospitalization, Other)
  Sender: FDA-Public Use
  Company Number: US-AMGEN-USASP2015010441

PATIENT
  Age: 45 Year
  Sex: Female

DRUGS (1)
  1. ENBREL [Suspect]
     Active Substance: ETANERCEPT
     Indication: RHEUMATOID ARTHRITIS
     Dosage: UNK UNK, UNK
     Route: 065
     Dates: start: 201410

REACTIONS (8)
  - Rash erythematous [Unknown]
  - Eye swelling [Unknown]
  - Altered state of consciousness [Unknown]
  - Death [Fatal]
  - Aphonia [Unknown]
  - Pneumocystis jirovecii pneumonia [Unknown]
  - Chapped lips [Unknown]
  - Pyrexia [Unknown]

NARRATIVE: CASE EVENT DATE: 20150114
